FAERS Safety Report 10398370 (Version 1)
Quarter: 2014Q3

REPORT INFORMATION
  Report Type: Spontaneous
  Country: US (occurrence: None)
  Receive Date: 20140818
  Receipt Date: 20140818
  Transmission Date: 20150326
  Serious: Yes (Other)
  Sender: FDA-Public Use
  Company Number: None

PATIENT
  Age: 20 Year
  Sex: Female

DRUGS (6)
  1. LAMICTAL [Concomitant]
     Active Substance: LAMOTRIGINE
  2. TOPAMAX [Concomitant]
     Active Substance: TOPIRAMATE
  3. DULOXETINE [Suspect]
     Active Substance: DULOXETINE
     Indication: BIPOLAR DISORDER
     Dosage: 2 CAPSULES QD ORAL
     Route: 048
  4. DULOXETINE [Suspect]
     Active Substance: DULOXETINE
     Route: 048
  5. PANTOPRA [Concomitant]
  6. SESENIQUE [Concomitant]

REACTIONS (6)
  - Anger [None]
  - Activities of daily living impaired [None]
  - Product substitution issue [None]
  - Depression [None]
  - Bedridden [None]
  - Ill-defined disorder [None]
